FAERS Safety Report 4571164-4 (Version None)
Quarter: 2005Q1

REPORT INFORMATION
  Report Type: 
  Country: None (occurrence: None)
  Receive Date: 20050202
  Receipt Date: 20050119
  Transmission Date: 20050727
  Serious: Yes (Hospitalization)
  Sender: FDA-Public Use
  Company Number: FR_050105649

PATIENT
  Age: 15 Year
  Sex: Male

DRUGS (2)
  1. ZYPREXA         RAPID ACTING IM [Suspect]
     Indication: AGITATION
     Dosage: 10 MG/1 HOUR
     Dates: start: 20050119, end: 20050119
  2. LOXAPINE SUCCINATE [Concomitant]

REACTIONS (2)
  - INJECTION SITE REACTION [None]
  - MEDICATION ERROR [None]
